FAERS Safety Report 4462039-X (Version None)
Quarter: 2004Q3

REPORT INFORMATION
  Report Type: 
  Country: None (occurrence: None)
  Receive Date: 20040927
  Receipt Date: 20040927
  Transmission Date: 20050211
  Serious: Yes (Life-Threatening, Disabling)
  Sender: FDA-Public Use
  Company Number: None

PATIENT
  Sex: Female
  Weight: 64.4108 kg

DRUGS (7)
  1. LIPITOR [Suspect]
     Indication: BLOOD CHOLESTEROL INCREASED
     Dosage: ONCE DAILY ORALLY
     Route: 048
     Dates: start: 19880101, end: 20040601
  2. ACCUPRIL [Concomitant]
  3. FLONASE [Concomitant]
  4. AZMACORT [Concomitant]
  5. XALATAN [Concomitant]
  6. PROZAC [Concomitant]
  7. ALBUTEROL [Concomitant]

REACTIONS (6)
  - ASTHENIA [None]
  - DECREASED ACTIVITY [None]
  - FEELING ABNORMAL [None]
  - MALAISE [None]
  - MEMORY IMPAIRMENT [None]
  - MYALGIA [None]
